FAERS Safety Report 4339508-6 (Version None)
Quarter: 2004Q2

REPORT INFORMATION
  Report Type: 
  Country: None (occurrence: None)
  Receive Date: 20040412
  Receipt Date: 20040330
  Transmission Date: 20050107
  Serious: Yes (Other)
  Sender: FDA-Public Use
  Company Number: TR-JNJFOC-20040400411

PATIENT
  Age: 56 Year
  Sex: Male

DRUGS (1)
  1. INFLIXIMAB (INFLIXIMAB, RECOMBINANT) LYOPHILIZED POWDER [Suspect]
     Indication: BEHCET'S SYNDROME
     Dosage: 5 MG/KG, 4 IN, INTRAVENOUS
     Route: 042

REACTIONS (1)
  - ERYTHEMA NODOSUM [None]
